FAERS Safety Report 5103195-X (Version None)
Quarter: 2006Q3

REPORT INFORMATION
  Report Type: 
  Country: None (occurrence: None)
  Receive Date: 20060912
  Receipt Date: 20060912
  Transmission Date: 20061208
  Serious: Yes (Hospitalization)
  Sender: FDA-Public Use
  Company Number: None

PATIENT
  Age: 13 Year
  Sex: Male
  Weight: 57 kg

DRUGS (7)
  1. NORDITROPIN [Suspect]
     Indication: GROWTH HORMONE DEFICIENCY
     Dosage: 2.4 MG DAILY
     Dates: start: 20060810, end: 20060830
  2. QVAR 40 [Concomitant]
  3. NASONEX [Concomitant]
  4. MAXAIR [Concomitant]
  5. SINGULAIR [Concomitant]
  6. SEREVENT [Concomitant]
  7. IBUPROFEN [Concomitant]

REACTIONS (5)
  - BENIGN INTRACRANIAL HYPERTENSION [None]
  - HEADACHE [None]
  - NECK PAIN [None]
  - PAPILLOEDEMA [None]
  - PHOTOPHOBIA [None]
